FAERS Safety Report 15242561 (Version 1)
Quarter: 2018Q4

REPORT INFORMATION
  Report Type: Spontaneous
  Country: US (occurrence: US)
  Receive Date: 20180806
  Receipt Date: 20180806
  Transmission Date: 20190204
  Serious: Yes (Other)
  Sender: FDA-Public Use
  Company Number: US-JNJFOC-20180737000

PATIENT
  Age: 20 Year
  Sex: Female

DRUGS (1)
  1. JBABY BABY POWDER UNSPECIFIED USA (ZINC OXIDE) [Suspect]
     Active Substance: ZINC OXIDE
     Indication: PRODUCT USED FOR UNKNOWN INDICATION
     Dosage: APPLIED LIBERALLY
     Route: 061
     Dates: start: 19760225

REACTIONS (2)
  - Ovarian cancer stage IV [Not Recovered/Not Resolved]
  - Lung neoplasm malignant [Not Recovered/Not Resolved]

NARRATIVE: CASE EVENT DATE: 19960225
